FAERS Safety Report 7323435-6 (Version None)
Quarter: 2011Q1

REPORT INFORMATION
  Report Type: 
  Country: None (occurrence: None)
  Receive Date: 20110301
  Receipt Date: 20110217
  Transmission Date: 20110831
  Serious: Yes (Hospitalization, Disabling, Other)
  Sender: FDA-Public Use
  Company Number: US-ROCHE-384993

PATIENT
  Sex: Female
  Weight: 54 kg

DRUGS (7)
  1. ACCUTANE [Suspect]
     Dosage: 80 MG MONDAY, WEDNESDAY, AND FRIDAY; 40 MG TUESDAY, THRUSDAY, SATURDAY, AND SUNDAY
     Route: 048
     Dates: start: 19980301, end: 19980401
  2. ACCUTANE [Suspect]
     Dosage: 40 MG A DAY, 80 MG TWO DAYS A WEEK
     Route: 048
     Dates: start: 19980201, end: 19980301
  3. ALBUTEROL [Concomitant]
     Indication: ASTHMA
     Dosage: TAKEN AS NEEDED; NOT TAKEN REGULARLY
  4. ACCUTANE [Suspect]
     Dosage: 40 MG MONDAY THROUGH FRIDAY, THEN 40 MG DAILY
     Route: 048
     Dates: start: 19980101, end: 19980201
  5. ACCUTANE [Suspect]
     Route: 048
     Dates: start: 19980401, end: 19980611
  6. ACCUTANE [Suspect]
     Indication: ACNE
     Route: 048
     Dates: start: 19971201, end: 19980101
  7. BECLOVENT [Concomitant]
     Indication: ASTHMA
     Dosage: TAKEN AS NEEDED; NOT TAKEN REGULARLY

REACTIONS (40)
  - SUBCUTANEOUS ABSCESS [None]
  - RECTAL ABSCESS [None]
  - ABDOMINAL ABSCESS [None]
  - RECTAL HAEMORRHAGE [None]
  - ALOPECIA EFFLUVIUM [None]
  - ARTHRALGIA [None]
  - DEHYDRATION [None]
  - PSOAS ABSCESS [None]
  - ANAEMIA OF CHRONIC DISEASE [None]
  - INTESTINAL HAEMORRHAGE [None]
  - NEURALGIA [None]
  - REFRACTION DISORDER [None]
  - THROMBOPHLEBITIS SUPERFICIAL [None]
  - ANAL STENOSIS [None]
  - MULTI-ORGAN DISORDER [None]
  - ANAL FISTULA [None]
  - DUODENITIS [None]
  - CELLULITIS [None]
  - VOMITING [None]
  - COLITIS [None]
  - STAPHYLOCOCCAL SEPSIS [None]
  - NAUSEA [None]
  - CROHN'S DISEASE [None]
  - ENTEROCUTANEOUS FISTULA [None]
  - DEPRESSION [None]
  - GASTRITIS [None]
  - PHARYNGITIS [None]
  - SKIN ULCER [None]
  - LARGE INTESTINE PERFORATION [None]
  - ANAL ABSCESS [None]
  - IRRITABLE BOWEL SYNDROME [None]
  - PERITONITIS [None]
  - WHITE BLOOD CELL COUNT DECREASED [None]
  - GASTROINTESTINAL DISORDER [None]
  - INFLAMMATORY BOWEL DISEASE [None]
  - NEPHROLITHIASIS [None]
  - PERIRECTAL ABSCESS [None]
  - IRON DEFICIENCY ANAEMIA [None]
  - ADJUSTMENT DISORDER [None]
  - VIRAL INFECTION [None]
